FAERS Safety Report 23691093 (Version 2)
Quarter: 2024Q2

REPORT INFORMATION
  Report Type: Spontaneous
  Country: NL (occurrence: NL)
  Receive Date: 20240401
  Receipt Date: 20240410
  Transmission Date: 20240716
  Serious: Yes (Other)
  Sender: FDA-Public Use
  Company Number: NL-MLMSERVICE-20240313-4880439-1

PATIENT
  Age: 49 Year
  Sex: Male

DRUGS (2)
  1. TERBINAFINE [Suspect]
     Active Substance: TERBINAFINE
     Indication: Onychomycosis
     Dosage: UNK
     Route: 048
  2. TERBINAFINE [Suspect]
     Active Substance: TERBINAFINE
     Indication: Nail discolouration

REACTIONS (4)
  - Dermatitis exfoliative [Recovered/Resolved]
  - Rash macular [Recovered/Resolved]
  - Red blood cell sedimentation rate increased [Unknown]
  - Drug eruption [Recovered/Resolved]
